FAERS Safety Report 8539977-1 (Version None)
Quarter: 2012Q3

REPORT INFORMATION
  Report Type: 
  Country: None (occurrence: None)
  Receive Date: 20120726
  Receipt Date: 20120723
  Transmission Date: 20120928
  Serious: Yes (Hospitalization)
  Sender: FDA-Public Use
  Company Number: PHHY2012US063212

PATIENT
  Age: 53 Year
  Sex: Female

DRUGS (2)
  1. PHENYTOIN [Suspect]
  2. RISPERIDONE [Suspect]

REACTIONS (2)
  - HYPOTHERMIA [None]
  - ANTICONVULSANT DRUG LEVEL INCREASED [None]
